FAERS Safety Report 23619190 (Version 1)
Quarter: 2024Q1

REPORT INFORMATION
  Report Type: Spontaneous
  Country: US (occurrence: US)
  Receive Date: 20240311
  Receipt Date: 20240311
  Transmission Date: 20240410
  Serious: Yes (Other)
  Sender: FDA-Public Use
  Company Number: US-BRISTOL-MYERS SQUIBB COMPANY-2024-037778

PATIENT
  Age: 65 Year
  Sex: Male

DRUGS (1)
  1. REVLIMID [Suspect]
     Active Substance: LENALIDOMIDE
     Indication: Product used for unknown indication
     Dosage: 1 QD FOR 21 DAYS ON THEN 7 DAYS OFF
     Route: 048

REACTIONS (5)
  - Abdominal pain upper [Unknown]
  - Sensitive skin [Unknown]
  - Headache [Unknown]
  - Dysphonia [Unknown]
  - Stomatitis [Unknown]
